FAERS Safety Report 21860619 (Version 1)
Quarter: 2023Q1

REPORT INFORMATION
  Report Type: Spontaneous
  Country: US (occurrence: None)
  Receive Date: 20230113
  Receipt Date: 20230113
  Transmission Date: 20230417
  Serious: Yes (Hospitalization)
  Sender: FDA-Public Use
  Company Number: None

PATIENT
  Weight: 95.3 kg

DRUGS (29)
  1. EPCLUSA [Suspect]
     Active Substance: SOFOSBUVIR\VELPATASVIR
     Indication: Hepatitis C
     Dosage: OTHER QUANTITY : 400-100 MG;?FREQUENCY : DAILY;?
     Route: 048
     Dates: start: 20171122, end: 20180216
  2. LEVOTHYROXINE [Concomitant]
     Active Substance: LEVOTHYROXINE
  3. ROSUVASTATIN [Concomitant]
     Active Substance: ROSUVASTATIN
  4. ZOPICLONE [Concomitant]
     Active Substance: ZOPICLONE
  5. CICLESONIDE [Concomitant]
     Active Substance: CICLESONIDE
  6. VITAMIN D [Concomitant]
     Active Substance: VITAMIN D NOS
  7. CALCIUM [Concomitant]
     Active Substance: CALCIUM
  8. ACETAMINOPHEN [Concomitant]
     Active Substance: ACETAMINOPHEN
  9. SENNA [Concomitant]
     Active Substance: SENNA LEAF\SENNOSIDES\SENNOSIDES A AND B
  10. CYCLOSPORINE [Concomitant]
     Active Substance: CYCLOSPORINE
  11. LANTUS [Concomitant]
     Active Substance: INSULIN GLARGINE
  12. METOPROLOL [Concomitant]
     Active Substance: METOPROLOL
  13. NYSTATIN [Concomitant]
     Active Substance: NYSTATIN
  14. PREDNISONE [Concomitant]
     Active Substance: PREDNISONE
  15. VALGANCICLOVIR [Concomitant]
     Active Substance: VALGANCICLOVIR
  16. MYFORTIC [Concomitant]
     Active Substance: MYCOPHENOLATE SODIUM
  17. SEPTRA [Concomitant]
     Active Substance: SULFAMETHOXAZOLE\TRIMETHOPRIM
  18. HYDROMORPHONE [Concomitant]
     Active Substance: HYDROMORPHONE
  19. POLYETHYLENE GLYCOL [Concomitant]
     Active Substance: POLYETHYLENE GLYCOL
  20. ALENDRONATE [Concomitant]
     Active Substance: ALENDRONATE SODIUM
  21. FERROUS GLUCONATE [Concomitant]
     Active Substance: FERROUS GLUCONATE
  22. CIPROFLOXACIN [Concomitant]
     Active Substance: CIPROFLOXACIN
  23. FUROSEMIDE [Concomitant]
     Active Substance: FUROSEMIDE
  24. REACTINE [Concomitant]
  25. DOCUSATE SODIUM [Concomitant]
     Active Substance: DOCUSATE SODIUM
  26. HEPARIN [Concomitant]
     Active Substance: HEPARIN SODIUM
  27. DIPHENHYDRAMINE [Concomitant]
     Active Substance: DIPHENHYDRAMINE
  28. MINERAL OIL [Concomitant]
     Active Substance: MINERAL OIL
  29. PANTOPRAZOLE SODIUM [Concomitant]
     Active Substance: PANTOPRAZOLE SODIUM

REACTIONS (2)
  - Candida pneumonia [None]
  - Empyema [None]

NARRATIVE: CASE EVENT DATE: 20171122
